FAERS Safety Report 26130214 (Version 1)
Quarter: 2025Q4

REPORT INFORMATION
  Report Type: Report from Study
  Country: CN (occurrence: CN)
  Receive Date: 20251208
  Receipt Date: 20251208
  Transmission Date: 20260118
  Serious: No
  Sender: MARINUS PHARMACEUTICALS
  Company Number: CN-MARINUS PHARMACEUTICALS, INC.-MAR2025000236

PATIENT

DRUGS (19)
  1. GANAXOLONE [Suspect]
     Active Substance: GANAXOLONE
     Indication: Epilepsy
     Dosage: 3 MILLILITER, QD
     Route: 048
     Dates: start: 20250503, end: 20250518
  2. GANAXOLONE [Suspect]
     Active Substance: GANAXOLONE
     Indication: CDKL5 deficiency disorder
     Dosage: DAILY TREATMENT DOSAGE: 6 ML
     Route: 048
     Dates: start: 20250519, end: 20250525
  3. GANAXOLONE [Suspect]
     Active Substance: GANAXOLONE
     Dosage: DAILY TREATMENT DOSAGE: 9 ML
     Route: 048
     Dates: start: 20250526, end: 20250601
  4. GANAXOLONE [Suspect]
     Active Substance: GANAXOLONE
     Dosage: DAILY TREATMENT DOSAGE: 12 ML
     Route: 048
     Dates: start: 20250602, end: 20250607
  5. GANAXOLONE [Suspect]
     Active Substance: GANAXOLONE
     Dosage: DAILY TREATMENT DOSAGE: 15 ML
     Route: 048
     Dates: start: 20250608, end: 20250614
  6. GANAXOLONE [Suspect]
     Active Substance: GANAXOLONE
     Dosage: DAILY TREATMENT DOSAGE: 18 ML
     Route: 048
     Dates: start: 20250615, end: 20250621
  7. GANAXOLONE [Suspect]
     Active Substance: GANAXOLONE
     Dosage: DAILY TREATMENT DOSAGE: 21 ML
     Route: 048
     Dates: start: 20250622, end: 20250628
  8. GANAXOLONE [Suspect]
     Active Substance: GANAXOLONE
     Dosage: DAILY TREATMENT DOSAGE: 24 ML
     Route: 048
     Dates: start: 20250629, end: 20250705
  9. GANAXOLONE [Suspect]
     Active Substance: GANAXOLONE
     Dosage: DAILY TREATMENT DOSAGE: 21 ML
     Route: 048
     Dates: start: 20250706, end: 20250712
  10. GANAXOLONE [Suspect]
     Active Substance: GANAXOLONE
     Dosage: DAILY TREATMENT DOSAGE: 18 ML
     Route: 048
     Dates: start: 20250713, end: 20250719
  11. GANAXOLONE [Suspect]
     Active Substance: GANAXOLONE
     Dosage: DAILY TREATMENT DOSAGE: 15 ML
     Route: 048
     Dates: start: 20250720, end: 20250726
  12. GANAXOLONE [Suspect]
     Active Substance: GANAXOLONE
     Dosage: DAILY TREATMENT DOSAGE: 12 ML
     Route: 048
     Dates: start: 20250727, end: 20250802
  13. GANAXOLONE [Suspect]
     Active Substance: GANAXOLONE
     Dosage: DAILY TREATMENT DOSAGE: 9 ML
     Route: 048
     Dates: start: 20250803, end: 20250815
  14. GANAXOLONE [Suspect]
     Active Substance: GANAXOLONE
     Dosage: DAILY TREATMENT DOSAGE: 6 ML
     Route: 048
     Dates: start: 20250816, end: 20250829
  15. GANAXOLONE [Suspect]
     Active Substance: GANAXOLONE
     Dosage: DAILY TREATMENT DOSAGE: 3 ML
     Route: 048
     Dates: start: 20250830, end: 20250905
  16. LEVETIRACETAM [Concomitant]
     Active Substance: LEVETIRACETAM
     Indication: Epilepsy
     Dosage: 0.625 G, BID
     Route: 048
     Dates: start: 202309
  17. ZONISAMIDE [Concomitant]
     Active Substance: ZONISAMIDE
     Indication: Epilepsy
     Dosage: 75 MG, BID
     Route: 048
     Dates: start: 202301
  18. VALPROATE SODIUM [Concomitant]
     Active Substance: VALPROATE SODIUM
     Indication: Epilepsy
     Dosage: 7 ML, BID
     Route: 048
     Dates: start: 202205
  19. VALPROATE SODIUM [Concomitant]
     Active Substance: VALPROATE SODIUM
     Indication: CDKL5 deficiency disorder

REACTIONS (1)
  - Platelet count decreased [Not Recovered/Not Resolved]

NARRATIVE: CASE EVENT DATE: 20250906
